FAERS Safety Report 8849104 (Version 1)
Quarter: 2012Q4

REPORT INFORMATION
  Report Type: Spontaneous
  Country: ES (occurrence: None)
  Receive Date: 20121016
  Receipt Date: 20121016
  Transmission Date: 20130627
  Serious: Yes (Hospitalization, Other)
  Sender: FDA-Public Use
  Company Number: 2012P1060774

PATIENT
  Age: 31 Year
  Sex: Male

DRUGS (2)
  1. LEVETIRACETAM [Suspect]
     Indication: GENERALIZED TONIC-CLONIC SEIZURE
     Route: 048
  2. DEXAMETHASONE [Concomitant]

REACTIONS (16)
  - Dyspnoea [None]
  - Pyrexia [None]
  - Rales [None]
  - Chest X-ray abnormal [None]
  - Computerised tomogram abnormal [None]
  - Blood lactate dehydrogenase increased [None]
  - Rash pruritic [None]
  - Rash maculo-papular [None]
  - Rash erythematous [None]
  - Face oedema [None]
  - Periorbital oedema [None]
  - Eye swelling [None]
  - Lung infiltration [None]
  - Hypoxia [None]
  - Drug reaction with eosinophilia and systemic symptoms [None]
  - Liver function test abnormal [None]
